FAERS Safety Report 14667498 (Version 1)
Quarter: 2018Q1

REPORT INFORMATION
  Report Type: Spontaneous
  Country: US (occurrence: US)
  Receive Date: 20180322
  Receipt Date: 20180322
  Transmission Date: 20180509
  Serious: Yes (Other)
  Sender: FDA-Public Use
  Company Number: US-BAYER-2018-049947

PATIENT

DRUGS (13)
  1. BUMEX [Concomitant]
     Active Substance: BUMETANIDE
  2. PAROXETINE. [Concomitant]
     Active Substance: PAROXETINE
  3. RIFAXIMIN. [Concomitant]
     Active Substance: RIFAXIMIN
  4. NEXAVAR [Suspect]
     Active Substance: SORAFENIB
  5. LACTULOSE. [Concomitant]
     Active Substance: LACTULOSE
  6. NADOLOL. [Concomitant]
     Active Substance: NADOLOL
  7. POLYETHYLENE GLYCOL [Concomitant]
     Active Substance: POLYETHYLENE GLYCOLS
  8. INSULIN DETEMIR [Concomitant]
     Active Substance: INSULIN DETEMIR
  9. FAMOTIDINE. [Concomitant]
     Active Substance: FAMOTIDINE
  10. CIPROFLOXACIN. [Concomitant]
     Active Substance: CIPROFLOXACIN
  11. MAGNESIUM OXIDE. [Concomitant]
     Active Substance: MAGNESIUM OXIDE
  12. VITAMIN D [Concomitant]
     Active Substance: CHOLECALCIFEROL
  13. SPIRONOLACTONE. [Concomitant]
     Active Substance: SPIRONOLACTONE

REACTIONS (2)
  - Hyperbilirubinaemia [None]
  - Hyperammonaemia [None]

NARRATIVE: CASE EVENT DATE: 2013
